FAERS Safety Report 6102998-2 (Version None)
Quarter: 2009Q1

REPORT INFORMATION
  Report Type: 
  Country: None (occurrence: None)
  Receive Date: 20090305
  Receipt Date: 20090224
  Transmission Date: 20090719
  Serious: Yes (Hospitalization)
  Sender: FDA-Public Use
  Company Number: PHBS2009CN00870

PATIENT
  Age: 80 Year
  Sex: Male

DRUGS (6)
  1. DIOVAN [Suspect]
     Indication: HYPERTENSION
     Dosage: 80 MG, QD
     Route: 048
     Dates: start: 20071212
  2. ASPIRIN [Concomitant]
     Dosage: 100 MG, QD
  3. METOPROLOL SUCCINATE [Concomitant]
     Dosage: 12.5 MG, QD
  4. CLOPIDOGREL [Concomitant]
     Dosage: 75 MG, QD
  5. FLUVASTATIN [Concomitant]
     Dosage: 40 MG, QD
  6. BENAZEPRIL HYDROCHLORIDE [Concomitant]

REACTIONS (8)
  - ANGINA UNSTABLE [None]
  - ATRIAL FIBRILLATION [None]
  - COUGH [None]
  - NASOPHARYNGITIS [None]
  - RHINORRHOEA [None]
  - SPUTUM RETENTION [None]
  - THROAT IRRITATION [None]
  - UPPER RESPIRATORY TRACT INFECTION [None]
